FAERS Safety Report 16298177 (Version 1)
Quarter: 2019Q2

REPORT INFORMATION
  Report Type: Spontaneous
  Country: CA (occurrence: CA)
  Receive Date: 20190510
  Receipt Date: 20190510
  Transmission Date: 20190711
  Serious: Yes (Hospitalization)
  Sender: FDA-Public Use
  Company Number: CA-TEVA-2019-CA-1047015

PATIENT
  Age: 79 Year
  Sex: Male

DRUGS (12)
  1. AMOXICILLIN/CLAVULANATE [Concomitant]
     Active Substance: AMOXICILLIN\CLAVULANATE POTASSIUM
  2. ACETAMINOPHEN. [Concomitant]
     Active Substance: ACETAMINOPHEN
  3. ENOXAPARIN [Concomitant]
     Active Substance: ENOXAPARIN
  4. DULOXETINE. [Suspect]
     Active Substance: DULOXETINE
     Dosage: 60 MILLIGRAM DAILY;
     Route: 048
  5. ASPIRIN. [Concomitant]
     Active Substance: ASPIRIN
  6. SENNA [Concomitant]
     Active Substance: SENNA LEAF\SENNOSIDES\SENNOSIDES A AND B
  7. VITAMIN D [Concomitant]
     Active Substance: VITAMIN D NOS
  8. CIPROFLOXACIN. [Concomitant]
     Active Substance: CIPROFLOXACIN
  9. PANTOPRAZOLE [Concomitant]
     Active Substance: PANTOPRAZOLE
  10. PEG 3350 [Concomitant]
     Active Substance: POLYETHYLENE GLYCOL 3350
  11. ROSUVASTATIN. [Concomitant]
     Active Substance: ROSUVASTATIN
  12. VITAMIN B12 [Concomitant]
     Active Substance: CYANOCOBALAMIN

REACTIONS (4)
  - Skin laceration [Recovering/Resolving]
  - Fall [Recovering/Resolving]
  - Hypotension [Recovering/Resolving]
  - Musculoskeletal pain [Recovering/Resolving]
